FAERS Safety Report 8227328-1 (Version None)
Quarter: 2012Q1

REPORT INFORMATION
  Report Type: 
  Country: None (occurrence: None)
  Receive Date: 20120322
  Receipt Date: 20120319
  Transmission Date: 20120608
  Serious: Yes (Death)
  Sender: FDA-Public Use
  Company Number: PHHY2012CL023672

PATIENT
  Sex: Female

DRUGS (2)
  1. GLEEVEC [Suspect]
     Dosage: 400 MG,
     Route: 048
     Dates: start: 20041214, end: 20120115
  2. GLEEVEC [Suspect]
     Dosage: 800 MG,
     Route: 048
     Dates: start: 20120115

REACTIONS (1)
  - DISEASE PROGRESSION [None]
